FAERS Safety Report 15541427 (Version 2)
Quarter: 2018Q4

REPORT INFORMATION
  Report Type: Report from Study
  Country: BR (occurrence: BR)
  Receive Date: 20181023
  Receipt Date: 20181104
  Transmission Date: 20190205
  Serious: Yes (Hospitalization, Other)
  Sender: FDA-Public Use
  Company Number: BR-UCBSA-2018046630

PATIENT
  Age: 76 Year
  Sex: Male
  Weight: 80 kg

DRUGS (2)
  1. DEPAKENE [Concomitant]
     Active Substance: VALPROIC ACID
     Indication: SEIZURE
     Dosage: UNK
     Route: 048
  2. LEVETIRACETAM. [Suspect]
     Active Substance: LEVETIRACETAM
     Indication: SEIZURE
     Dosage: 750 MG, 2X/DAY (BID)
     Route: 048
     Dates: start: 20180825

REACTIONS (8)
  - Eating disorder [Not Recovered/Not Resolved]
  - Peripheral swelling [Unknown]
  - Muscle spasms [Unknown]
  - Brain neoplasm [Recovered/Resolved]
  - Seizure [Recovering/Resolving]
  - Irritability [Unknown]
  - Tremor [Unknown]
  - Muscular weakness [Unknown]

NARRATIVE: CASE EVENT DATE: 2018
